FAERS Safety Report 18373161 (Version 3)
Quarter: 2020Q4

REPORT INFORMATION
  Report Type: Spontaneous
  Country: US (occurrence: US)
  Receive Date: 20201012
  Receipt Date: 20201020
  Transmission Date: 20210114
  Serious: Yes (Hospitalization)
  Sender: FDA-Public Use
  Company Number: US-PFIZER INC-2020384242

PATIENT
  Sex: Female

DRUGS (1)
  1. NALOXONE HCL [Suspect]
     Active Substance: NALOXONE HYDROCHLORIDE
     Dosage: UNK
     Dates: start: 20201001, end: 20201001

REACTIONS (1)
  - Injury associated with device [Recovered/Resolved]

NARRATIVE: CASE EVENT DATE: 20201001
